FAERS Safety Report 5421893-5 (Version None)
Quarter: 2007Q3

REPORT INFORMATION
  Report Type: 
  Country: None (occurrence: None)
  Receive Date: 20070817
  Receipt Date: 20070813
  Transmission Date: 20080115
  Serious: Yes (Hospitalization)
  Sender: FDA-Public Use
  Company Number: 062-C5013-07041508

PATIENT
  Age: 64 Year
  Sex: Female

DRUGS (4)
  1. CC-5013 (LENALIDOMIDE) [Suspect]
     Indication: MULTIPLE MYELOMA
     Dosage: 15 MG, DAILY, ORAL
     Route: 048
     Dates: start: 20070416
  2. DEXAMETHASONE TAB [Suspect]
     Indication: MULTIPLE MYELOMA
     Dosage: 40 MG, DAYS 1-4  ORAL
     Route: 048
     Dates: start: 20070416, end: 20070503
  3. DEXAMETHASONE TAB [Suspect]
     Indication: MULTIPLE MYELOMA
     Dosage: 40 MG, DAYS 1-4  ORAL
     Route: 048
     Dates: start: 20070521
  4. CORTISONE ACETATE [Concomitant]

REACTIONS (5)
  - DIARRHOEA [None]
  - DUODENITIS [None]
  - NAUSEA [None]
  - OESOPHAGITIS [None]
  - RENAL FAILURE [None]
